FAERS Safety Report 7989283-9 (Version None)
Quarter: 2011Q4

REPORT INFORMATION
  Report Type: 
  Country: None (occurrence: None)
  Receive Date: 20111216
  Receipt Date: 20111216
  Transmission Date: 20120403
  Serious: Yes (Hospitalization)
  Sender: FDA-Public Use
  Company Number: None

PATIENT
  Sex: Male
  Weight: 60 kg

DRUGS (1)
  1. RITUXIMAB (MOAB CDB8 ANTI CD20 CHIMERIC) [Suspect]
     Dosage: 641.2 MG

REACTIONS (4)
  - DIZZINESS [None]
  - RIB FRACTURE [None]
  - CONFUSIONAL STATE [None]
  - FALL [None]
